FAERS Safety Report 6428372-7 (Version None)
Quarter: 2009Q4

REPORT INFORMATION
  Report Type: 
  Country: None (occurrence: None)
  Receive Date: 20091104
  Receipt Date: 20091104
  Transmission Date: 20100525
  Serious: Yes (Other)
  Sender: FDA-Public Use
  Company Number: None

PATIENT
  Age: 45 Year
  Sex: Female
  Weight: 111.1 kg

DRUGS (1)
  1. BUPROPION HCL [Suspect]
     Indication: POST-TRAUMATIC STRESS DISORDER
     Dosage: 200 MG BID PO
     Route: 048

REACTIONS (2)
  - MOOD ALTERED [None]
  - PRODUCT SUBSTITUTION ISSUE [None]
